FAERS Safety Report 10045271 (Version 1)
Quarter: 2014Q1

REPORT INFORMATION
  Report Type: Spontaneous
  Country: US (occurrence: US)
  Receive Date: 20140328
  Receipt Date: 20140328
  Transmission Date: 20141002
  Serious: No
  Sender: FDA-Public Use
  Company Number: US-JHP PHARMACEUTICALS, LLC-JHP201300721

PATIENT
  Age: 3 Year
  Sex: Female
  Weight: 14.9 kg

DRUGS (2)
  1. KETALAR [Suspect]
     Indication: INDUCTION OF ANAESTHESIA
     Dosage: 1.5 MG/KG, SINGLE
     Route: 042
     Dates: start: 20131011, end: 20131011
  2. MORPHINE [Suspect]
     Dosage: 1.5 MG, SINGLE
     Route: 042
     Dates: start: 20131011, end: 20131011

REACTIONS (2)
  - Muscle rigidity [Recovered/Resolved]
  - Off label use [Recovered/Resolved]
